FAERS Safety Report 6893283-X (Version None)
Quarter: 2010Q3

REPORT INFORMATION
  Report Type: 
  Country: None (occurrence: None)
  Receive Date: 20100731
  Receipt Date: 20090803
  Transmission Date: 20110219
  Serious: No
  Sender: FDA-Public Use
  Company Number: US-PFIZER INC-2009225408

PATIENT
  Sex: Female
  Weight: 72.562 kg

DRUGS (4)
  1. NEURONTIN [Suspect]
     Indication: FIBROMYALGIA
     Dosage: 600 MG, 3X/DAY
     Route: 048
     Dates: start: 20070301, end: 20090301
  2. NEURONTIN [Suspect]
     Indication: NEUROPATHY PERIPHERAL
  3. LYRICA [Suspect]
     Indication: FIBROMYALGIA
     Dosage: 75 MG, 3X/DAY
     Route: 048
     Dates: start: 20090301
  4. LYRICA [Suspect]
     Indication: NEUROPATHY PERIPHERAL

REACTIONS (2)
  - PAIN [None]
  - WEIGHT INCREASED [None]
